FAERS Safety Report 21045949 (Version 1)
Quarter: 2022Q3

REPORT INFORMATION
  Report Type: Report from Study
  Country: BR (occurrence: BR)
  Receive Date: 20220706
  Receipt Date: 20220706
  Transmission Date: 20221027
  Serious: Yes (Other)
  Sender: FDA-Public Use
  Company Number: BR-JNJFOC-20220661138

PATIENT
  Age: 8 Decade
  Sex: Female
  Weight: 73 kg

DRUGS (1)
  1. SIMPONI [Suspect]
     Active Substance: GOLIMUMAB
     Indication: Ankylosing spondylitis
     Route: 058
     Dates: start: 20200512

REACTIONS (4)
  - Haematochezia [Unknown]
  - Ankylosing spondylitis [Unknown]
  - Gastrointestinal disorder [Unknown]
  - Drug ineffective [Unknown]
